FAERS Safety Report 5710435-2 (Version None)
Quarter: 2008Q2

REPORT INFORMATION
  Report Type: 
  Country: None (occurrence: None)
  Receive Date: 20080418
  Receipt Date: 20080408
  Transmission Date: 20081010
  Serious: Yes (Other)
  Sender: FDA-Public Use
  Company Number: US-PFIZER INC-2008032726

PATIENT
  Sex: Male

DRUGS (5)
  1. LYRICA [Suspect]
     Indication: FIBROMYALGIA
     Dates: start: 20080129, end: 20080213
  2. NORTRIPTYLINE HCL [Concomitant]
  3. SERTRALINE [Concomitant]
  4. TERAZOSIN HCL [Concomitant]
  5. ACETYLSALICYLIC ACID SRT [Concomitant]

REACTIONS (4)
  - ABASIA [None]
  - ANAPHYLACTIC SHOCK [None]
  - IMPAIRED SELF-CARE [None]
  - PAIN [None]
